FAERS Safety Report 9285366 (Version 1)
Quarter: 2013Q2

REPORT INFORMATION
  Report Type: Spontaneous
  Country: GB (occurrence: GB)
  Receive Date: 20130513
  Receipt Date: 20130513
  Transmission Date: 20140414
  Serious: Yes (Hospitalization)
  Sender: FDA-Public Use
  Company Number: GB-BRISTOL-MYERS SQUIBB COMPANY-18861500

PATIENT
  Sex: Male
  Weight: 80 kg

DRUGS (1)
  1. IPILIMUMAB [Suspect]

REACTIONS (3)
  - Diarrhoea [Unknown]
  - Peptic ulcer [Unknown]
  - Conjunctivitis [Unknown]
